FAERS Safety Report 7029530-3 (Version None)
Quarter: 2010Q3

REPORT INFORMATION
  Report Type: 
  Country: None (occurrence: None)
  Receive Date: 20100930
  Receipt Date: 20100914
  Transmission Date: 20110219
  Serious: Yes (Death, Hospitalization)
  Sender: FDA-Public Use
  Company Number: 2010004039

PATIENT
  Age: 69 Year
  Sex: Male

DRUGS (2)
  1. ERLOTINIB HYDROCHLORIDE [Suspect]
     Indication: ADENOCARCINOMA PANCREAS
     Dosage: (150 MG, QD)
     Dates: start: 20100728
  2. GEMCITABINE [Suspect]
     Indication: ADENOCARCINOMA PANCREAS
     Dosage: (2000 MG)
     Dates: start: 20100728

REACTIONS (13)
  - ASPARTATE AMINOTRANSFERASE INCREASED [None]
  - BLOOD ALKALINE PHOSPHATASE INCREASED [None]
  - CONFUSIONAL STATE [None]
  - DISEASE PROGRESSION [None]
  - DRUG INEFFECTIVE [None]
  - GAMMA-GLUTAMYLTRANSFERASE INCREASED [None]
  - HALLUCINATION [None]
  - HYPERBILIRUBINAEMIA [None]
  - JAUNDICE [None]
  - METABOLIC ENCEPHALOPATHY [None]
  - PANCREATIC CARCINOMA METASTATIC [None]
  - PSYCHOTIC DISORDER [None]
  - RESTLESSNESS [None]
